FAERS Safety Report 15763241 (Version 2)
Quarter: 2019Q1

REPORT INFORMATION
  Report Type: Spontaneous
  Country: US (occurrence: US)
  Receive Date: 20181227
  Receipt Date: 20190207
  Transmission Date: 20190417
  Serious: No
  Sender: FDA-Public Use
  Company Number: US-SHIRE-US201849687

PATIENT
  Age: 61 Year
  Sex: Female

DRUGS (1)
  1. NATPARA (PARATHYROID HORMONE) [Suspect]
     Active Substance: PARATHYROID HORMONE
     Indication: PRODUCT USED FOR UNKNOWN INDICATION
     Dosage: 50 ?G, 1X/DAY:QD
     Route: 065
     Dates: start: 20180301

REACTIONS (3)
  - Product packaging issue [Unknown]
  - Muscle spasms [Unknown]
  - Product quality issue [Unknown]

NARRATIVE: CASE EVENT DATE: 20181226
